FAERS Safety Report 5735908-8 (Version None)
Quarter: 2008Q2

REPORT INFORMATION
  Report Type: 
  Country: None (occurrence: None)
  Receive Date: 20080509
  Receipt Date: 20080505
  Transmission Date: 20081010
  Serious: Yes (Hospitalization, Other)
  Sender: FDA-Public Use
  Company Number: 2008SP001414

PATIENT
  Age: 45 Year
  Sex: Female
  Weight: 63.05 kg

DRUGS (7)
  1. PEG-INTRON [Suspect]
     Indication: HEPATITIS C
     Dosage: 120 MCG;QW;SC; 120 MCG;QW;SC
     Route: 058
     Dates: start: 20071201, end: 20071221
  2. PEG-INTRON [Suspect]
     Indication: HEPATITIS C
     Dosage: 120 MCG;QW;SC; 120 MCG;QW;SC
     Route: 058
     Dates: start: 20080109
  3. REBETOL [Suspect]
     Indication: HEPATITIS C
     Dosage: 800 MG;QD;PO; 800MG;QD;PO
     Route: 048
     Dates: start: 20071201, end: 20071221
  4. REBETOL [Suspect]
     Indication: HEPATITIS C
     Dosage: 800 MG;QD;PO; 800MG;QD;PO
     Route: 048
     Dates: start: 20080109
  5. MORPHINE /00036302/ [Concomitant]
  6. DIAZEPAM [Concomitant]
  7. TORADOL [Concomitant]

REACTIONS (8)
  - ANAEMIA [None]
  - CAT SCRATCH DISEASE [None]
  - CELLULITIS [None]
  - DEHYDRATION [None]
  - HEADACHE [None]
  - LIMB INJURY [None]
  - SEPSIS [None]
  - STAPHYLOCOCCAL INFECTION [None]
